FAERS Safety Report 5629495-2 (Version None)
Quarter: 2008Q1

REPORT INFORMATION
  Report Type: 
  Country: None (occurrence: None)
  Receive Date: 20080215
  Receipt Date: 20080215
  Transmission Date: 20080703
  Serious: No
  Sender: FDA-Public Use
  Company Number: None

PATIENT
  Sex: Female

DRUGS (5)
  1. LISINOPRIL [Suspect]
     Indication: HYPERTENSION
     Dosage: 1 TABLET DAILY ORAL
     Route: 048
  2. ZETIA [Concomitant]
  3. SIMVASTATIN [Concomitant]
  4. PREDNISONE TAB [Concomitant]
  5. EVISTA [Concomitant]

REACTIONS (1)
  - DIZZINESS [None]
